FAERS Safety Report 20801456 (Version 2)
Quarter: 2022Q2

REPORT INFORMATION
  Report Type: Spontaneous
  Country: US (occurrence: US)
  Receive Date: 20220509
  Receipt Date: 20220606
  Transmission Date: 20220720
  Serious: No
  Sender: FDA-Public Use
  Company Number: US-BRISTOL-MYERS SQUIBB COMPANY-2022-030114

PATIENT
  Age: 69 Year
  Sex: Male

DRUGS (1)
  1. REVLIMID [Suspect]
     Active Substance: LENALIDOMIDE
     Indication: Product used for unknown indication
     Dosage: 25, OTHER
     Route: 048
     Dates: start: 20201019

REACTIONS (3)
  - Product dose omission issue [Unknown]
  - Intraocular pressure increased [Unknown]
  - Photopsia [Unknown]

NARRATIVE: CASE EVENT DATE: 20220301
